FAERS Safety Report 5127097-8 (Version None)
Quarter: 2006Q4

REPORT INFORMATION
  Report Type: 
  Country: None (occurrence: None)
  Receive Date: 20061013
  Receipt Date: 20051102
  Transmission Date: 20070319
  Serious: Yes (Hospitalization, Other)
  Sender: FDA-Public Use
  Company Number: 2005-0008878

PATIENT
  Age: 42 Year
  Sex: Male

DRUGS (2)
  1. ADEFOVIR DIPIVOXIL KIT [Suspect]
     Indication: HEPATITIS B
     Dosage: 10MG PER DAY
     Route: 048
  2. LAMIVUDINE [Suspect]
     Indication: HEPATITIS B
     Route: 065

REACTIONS (4)
  - BLOOD BILIRUBIN INCREASED [None]
  - DRUG RESISTANCE [None]
  - HEPATITIS B [None]
  - VIRAL INFECTION [None]
